FAERS Safety Report 5909508-0 (Version None)
Quarter: 2008Q4

REPORT INFORMATION
  Report Type: 
  Country: None (occurrence: None)
  Receive Date: 20081006
  Receipt Date: 20080926
  Transmission Date: 20090506
  Serious: Yes (Hospitalization)
  Sender: FDA-Public Use
  Company Number: BE-ABBOTT-08P-013-0440606-00

PATIENT
  Sex: Male
  Weight: 89 kg

DRUGS (15)
  1. KALETRA [Suspect]
     Indication: HIV INFECTION
     Route: 048
     Dates: start: 20080102, end: 20080208
  2. KALETRA [Suspect]
     Dates: start: 20080212, end: 20080407
  3. KALETRA [Suspect]
     Dates: start: 20080414
  4. KALETRA [Suspect]
  5. KALETRA [Suspect]
  6. LAMIVUDINE [Concomitant]
     Indication: DRUG USE FOR UNKNOWN INDICATION
     Dates: start: 20080111, end: 20080208
  7. LAMIVUDINE [Concomitant]
     Dates: start: 20080212, end: 20080401
  8. LAMIVUDINE [Concomitant]
     Dates: start: 20080414
  9. TENOFOVIR DISOPROXIL FUMARATE [Concomitant]
     Indication: DRUG USE FOR UNKNOWN INDICATION
  10. BACTRIM [Concomitant]
     Indication: DRUG USE FOR UNKNOWN INDICATION
     Dosage: 5 DAYS/7
  11. ABACAVIR SULFATE/LAMIVUDINE [Concomitant]
     Indication: DRUG USE FOR UNKNOWN INDICATION
     Dosage: 600/300 ONCE A DAY
     Dates: start: 20080102, end: 20080110
  12. TENOFAVIR [Concomitant]
     Indication: DRUG USE FOR UNKNOWN INDICATION
     Dates: start: 20080111, end: 20080208
  13. TENOFAVIR [Concomitant]
     Dates: start: 20080212, end: 20080407
  14. TENOFAVIR [Concomitant]
     Dates: start: 20080414
  15. BACTRIM [Concomitant]
     Indication: DRUG USE FOR UNKNOWN INDICATION

REACTIONS (15)
  - ABDOMINAL PAIN [None]
  - ANOREXIA [None]
  - BACK PAIN [None]
  - CHILLS [None]
  - DIARRHOEA [None]
  - HEADACHE [None]
  - HYPONATRAEMIA [None]
  - IMMUNE RECONSTITUTION SYNDROME [None]
  - LYMPHADENOPATHY [None]
  - MUSCLE SPASMS [None]
  - NAUSEA [None]
  - PSOAS ABSCESS [None]
  - PYREXIA [None]
  - VOMITING [None]
  - WEIGHT DECREASED [None]
